FAERS Safety Report 6584469-2 (Version None)
Quarter: 2010Q1

REPORT INFORMATION
  Report Type: 
  Country: None (occurrence: None)
  Receive Date: 20100212
  Receipt Date: 20100212
  Transmission Date: 20100710
  Serious: Yes (Hospitalization)
  Sender: FDA-Public Use
  Company Number: None

PATIENT
  Age: 83 Year

DRUGS (1)
  1. SULFAMETOXAZOLE/TRIMETHOPRIM [Suspect]
     Indication: INFECTION
     Dates: start: 20090801, end: 20090802

REACTIONS (1)
  - SYNCOPE [None]
